FAERS Safety Report 6129937-2 (Version None)
Quarter: 2009Q1

REPORT INFORMATION
  Report Type: 
  Country: None (occurrence: None)
  Receive Date: 20090323
  Receipt Date: 20090323
  Transmission Date: 20090719
  Serious: Yes (Other)
  Sender: FDA-Public Use
  Company Number: None

PATIENT
  Age: 40 Year
  Sex: Female
  Weight: 50.8029 kg

DRUGS (2)
  1. IMITREX [Suspect]
     Indication: MIGRAINE
     Dosage: 1 IV
     Route: 042
     Dates: start: 20090321, end: 20090321
  2. TREXIMET [Suspect]

REACTIONS (5)
  - BURNING SENSATION [None]
  - HEADACHE [None]
  - MOVEMENT DISORDER [None]
  - MUSCULOSKELETAL STIFFNESS [None]
  - SKIN TIGHTNESS [None]
